FAERS Safety Report 4464570-X (Version None)
Quarter: 2004Q3

REPORT INFORMATION
  Report Type: 
  Country: None (occurrence: None)
  Receive Date: 20040929
  Receipt Date: 20040920
  Transmission Date: 20050211
  Serious: Yes (Hospitalization)
  Sender: FDA-Public Use
  Company Number: BRO-007705

PATIENT
  Age: 48 Year
  Sex: Female

DRUGS (6)
  1. IOPAMIDOL-300 [Suspect]
     Indication: SPINAL MYELOGRAM
     Dosage: 8 ML, IT
     Dates: start: 20040818, end: 20040818
  2. METHYLCOBAL [Concomitant]
  3. MANNITOL [Concomitant]
  4. DEXAMETHASONE [Concomitant]
  5. CEFTRIAXONE SODIUM [Concomitant]
  6. DICYNONE (ETAMSILATE) [Concomitant]

REACTIONS (24)
  - ASTHENIA [None]
  - BLOOD PRESSURE SYSTOLIC INCREASED [None]
  - BODY TEMPERATURE INCREASED [None]
  - COMA [None]
  - CONJUNCTIVAL OEDEMA [None]
  - CONVULSION [None]
  - CYANOSIS [None]
  - DISTURBANCE IN ATTENTION [None]
  - DIZZINESS [None]
  - DYSPNOEA [None]
  - FEELING ABNORMAL [None]
  - GRAND MAL CONVULSION [None]
  - HEART RATE INCREASED [None]
  - INCOHERENT [None]
  - LOSS OF CONSCIOUSNESS [None]
  - MEMORY IMPAIRMENT [None]
  - MENTAL IMPAIRMENT [None]
  - MYDRIASIS [None]
  - OEDEMA PERIPHERAL [None]
  - OXYGEN SATURATION DECREASED [None]
  - PALPITATIONS [None]
  - POST PROCEDURAL COMPLICATION [None]
  - PUPILLARY LIGHT REFLEX TESTS ABNORMAL [None]
  - VOMITING [None]
